FAERS Safety Report 9044929 (Version 4)
Quarter: 2013Q1

REPORT INFORMATION
  Report Type: Spontaneous
  Country: JP (occurrence: JP)
  Receive Date: 20130130
  Receipt Date: 20130325
  Transmission Date: 20140127
  Serious: Yes (Hospitalization)
  Sender: FDA-Public Use
  Company Number: JP-GLAXOSMITHKLINE-B0862493A

PATIENT
  Age: 17 Year
  Sex: Male

DRUGS (1)
  1. FLOLAN [Suspect]
     Indication: PULMONARY HYPERTENSION
     Route: 065
     Dates: start: 200403

REACTIONS (3)
  - Hyperthyroidism [Recovering/Resolving]
  - Basedow^s disease [Recovering/Resolving]
  - Pulmonary hypertension [Recovering/Resolving]
